FAERS Safety Report 4830250-1 (Version None)
Quarter: 2005Q4

REPORT INFORMATION
  Report Type: 
  Country: None (occurrence: None)
  Receive Date: 20051117
  Receipt Date: 20050413
  Transmission Date: 20060501
  Serious: Yes (Other)
  Sender: FDA-Public Use
  Company Number: NZ-GLAXOSMITHKLINE-B0378434A

PATIENT
  Sex: Male
  Weight: 83 kg

DRUGS (5)
  1. AVANDIA [Suspect]
     Route: 065
     Dates: end: 20050301
  2. METFORMIN [Concomitant]
     Route: 065
  3. GLIBENCLAMIDE [Concomitant]
     Route: 065
  4. VITAMIN B-12 [Concomitant]
     Route: 065
  5. ATACAND [Concomitant]

REACTIONS (4)
  - CEREBROVASCULAR ACCIDENT [None]
  - DRUG INEFFECTIVE [None]
  - FATIGUE [None]
  - OEDEMA PERIPHERAL [None]
